FAERS Safety Report 18364159 (Version 1)
Quarter: 2020Q4

REPORT INFORMATION
  Report Type: Report from Study
  Country: US (occurrence: US)
  Receive Date: 20201009
  Receipt Date: 20201009
  Transmission Date: 20210114
  Serious: No
  Sender: FDA-Public Use
  Company Number: US-TERSERA THERAPEUTICS LLC-US2020GSK057231

PATIENT

DRUGS (4)
  1. ROLAPITANT HYDROCHLORIDE [Suspect]
     Active Substance: ROLAPITANT
     Dosage: 2 DF (180MG ONCE EVERY 2 WEEKS)
     Route: 048
     Dates: start: 20200313
  2. DEXAMETHASONE. [Concomitant]
     Active Substance: DEXAMETHASONE
     Dosage: UNK
  3. VENCLEXTA [Suspect]
     Active Substance: VENETOCLAX
     Dosage: UNK
  4. XPOVIO [Suspect]
     Active Substance: SELINEXOR
     Dosage: 80 MG (ONES WEEK)
     Dates: start: 20200313

REACTIONS (3)
  - Dizziness [Unknown]
  - Nausea [Unknown]
  - Platelet count decreased [Unknown]

NARRATIVE: CASE EVENT DATE: 20200114
